FAERS Safety Report 25219013 (Version 1)
Quarter: 2025Q2

REPORT INFORMATION
  Report Type: Spontaneous
  Country: US (occurrence: US)
  Receive Date: 20250421
  Receipt Date: 20250421
  Transmission Date: 20250716
  Serious: Yes (Hospitalization)
  Sender: INVENTIA HEALTHCARE LTD
  Company Number: US-IHL-000665

PATIENT
  Age: 47 Year
  Sex: Female
  Weight: 157 kg

DRUGS (6)
  1. SYNTHROID [Concomitant]
     Active Substance: LEVOTHYROXINE SODIUM
     Indication: Product used for unknown indication
     Route: 065
  2. BUPROPION [Concomitant]
     Active Substance: BUPROPION
     Indication: Product used for unknown indication
     Route: 065
  3. ALLEGRA [Concomitant]
     Active Substance: FEXOFENADINE HYDROCHLORIDE
     Indication: Product used for unknown indication
     Route: 065
  4. FAMOTIDINE [Concomitant]
     Active Substance: FAMOTIDINE
     Indication: Product used for unknown indication
     Route: 065
  5. SPIRONOLACTONE [Concomitant]
     Active Substance: SPIRONOLACTONE
     Indication: Acne
     Route: 065
  6. NITROFURANTOIN [Suspect]
     Active Substance: NITROFURANTOIN
     Indication: Urinary tract infection
     Route: 048
     Dates: start: 20250119, end: 20250123

REACTIONS (8)
  - Brain fog [Recovered/Resolved]
  - Fatigue [Recovered/Resolved]
  - Chromaturia [Recovered/Resolved]
  - Choking [Recovered/Resolved]
  - Nausea [Recovered/Resolved]
  - Hepatotoxicity [Recovered/Resolved]
  - Jaundice [Recovered/Resolved]
  - Chills [Recovered/Resolved]
